FAERS Safety Report 7470318-7 (Version None)
Quarter: 2011Q2

REPORT INFORMATION
  Report Type: 
  Country: None (occurrence: None)
  Receive Date: 20110510
  Receipt Date: 20081027
  Transmission Date: 20111010
  Serious: Yes (Other)
  Sender: FDA-Public Use
  Company Number: US-BAYER-200836969NA

PATIENT
  Age: 59 Year
  Sex: Male
  Weight: 74.83 kg

DRUGS (18)
  1. ACETYLCYSTEINE [Concomitant]
     Dosage: 400 MG, BID
     Route: 048
  2. LASIX [Concomitant]
     Dosage: 40 MG, BID
     Route: 048
  3. ETOMIDATE [Concomitant]
     Dosage: UNK
     Route: 042
     Dates: start: 20051202
  4. LOPRESSOR [Concomitant]
     Dosage: 50 MG, BID
     Route: 048
  5. HYDRALAZINE HCL [Concomitant]
     Dosage: 10 MG 4 TIMES A DAY, UNK
     Route: 048
  6. EPINEPHRINE [Concomitant]
     Dosage: 1 MG, UNK
     Route: 042
     Dates: start: 20051202
  7. PROPOFOL [Concomitant]
     Dosage: UNK
     Route: 042
     Dates: start: 20051202
  8. LIDOCAINE [Concomitant]
     Dosage: UNK
     Route: 042
     Dates: start: 20051202
  9. LOVENOX [Concomitant]
     Dosage: 80 MG, QD
     Route: 058
  10. FENTANYL [Concomitant]
     Dosage: UNK
     Route: 042
     Dates: start: 20051202
  11. TRASYLOL [Suspect]
     Indication: CORONARY ARTERY BYPASS
     Dosage: UNK
     Route: 042
     Dates: start: 20051202
  12. INSULIN [Concomitant]
  13. PAPAVERINE [Concomitant]
     Dosage: 300 MG, UNK
     Route: 042
     Dates: start: 20051202
  14. ZITHROMAX [Concomitant]
     Dosage: 250 MG, QD
     Route: 048
  15. HEPARIN [Concomitant]
     Dosage: 30000 U, UNK
     Route: 042
     Dates: start: 20051202
  16. IMDUR [Concomitant]
  17. VANCOMYCIN [Concomitant]
     Dosage: 500 MG, UNK
     Route: 042
     Dates: start: 20051202
  18. MIDAZOLAM [Concomitant]
     Dosage: UNK
     Route: 042
     Dates: start: 20051202

REACTIONS (9)
  - PAIN [None]
  - RENAL INJURY [None]
  - INJURY [None]
  - RENAL FAILURE [None]
  - ANXIETY [None]
  - RENAL FAILURE ACUTE [None]
  - EMOTIONAL DISTRESS [None]
  - UNEVALUABLE EVENT [None]
  - ADVERSE EVENT [None]
